FAERS Safety Report 5027501-X (Version None)
Quarter: 2006Q2

REPORT INFORMATION
  Report Type: 
  Country: None (occurrence: None)
  Receive Date: 20060501
  Receipt Date: 20060307
  Transmission Date: 20061013
  Serious: Yes (Other)
  Sender: FDA-Public Use
  Company Number: 200611459US

PATIENT
  Age: 41 Year
  Sex: Female
  Weight: 52.7 kg

DRUGS (5)
  1. KETEK [Suspect]
     Indication: SINUSITIS
     Dosage: 800 MG QD PO
     Route: 048
     Dates: start: 20050101, end: 20050101
  2. KETEK [Suspect]
     Indication: SINUSITIS
     Dosage: 800 MG QD PO
     Route: 048
     Dates: start: 20051019, end: 20051024
  3. MONTELUKAST SODIUM [Concomitant]
  4. BUDESONIDE (RHINOCORT) [Concomitant]
  5. AZATADINE MALEATE, PSEUDOEPHEDRINE SULFATE (RYNATAN /USA/) [Concomitant]

REACTIONS (8)
  - ABDOMINAL PAIN UPPER [None]
  - ALANINE AMINOTRANSFERASE INCREASED [None]
  - ASPARTATE AMINOTRANSFERASE INCREASED [None]
  - EOSINOPHIL COUNT INCREASED [None]
  - GAMMA-GLUTAMYLTRANSFERASE INCREASED [None]
  - PYREXIA [None]
  - SINUSITIS [None]
  - SPLENOMEGALY [None]
